FAERS Safety Report 6153854-5 (Version None)
Quarter: 2009Q2

REPORT INFORMATION
  Report Type: 
  Country: None (occurrence: None)
  Receive Date: 20090414
  Receipt Date: 20090402
  Transmission Date: 20091009
  Serious: Yes (Other)
  Sender: FDA-Public Use
  Company Number: US-JNJFOC-20090401024

PATIENT
  Sex: Male

DRUGS (2)
  1. REMICADE [Suspect]
     Dosage: SECOND INFUSION
     Route: 042
  2. REMICADE [Suspect]
     Indication: PSORIATIC ARTHROPATHY
     Route: 042

REACTIONS (6)
  - BLOOD PRESSURE INCREASED [None]
  - CHILLS [None]
  - INFUSION RELATED REACTION [None]
  - MIGRAINE [None]
  - PALPITATIONS [None]
  - TRISMUS [None]
